FAERS Safety Report 9542567 (Version 1)
Quarter: 2013Q3

REPORT INFORMATION
  Report Type: Spontaneous
  Country: GB (occurrence: GB)
  Receive Date: 20130923
  Receipt Date: 20130923
  Transmission Date: 20140515
  Serious: Yes (Other)
  Sender: FDA-Public Use
  Company Number: GB-ROCHE-1278433

PATIENT
  Age: 63 Year
  Sex: Male
  Weight: 103 kg

DRUGS (6)
  1. RIBAVIRIN [Suspect]
     Indication: HEPATITIS C
     Route: 048
     Dates: start: 20121107
  2. RIBAVIRIN [Suspect]
     Dosage: 200 MG + 400 MG
     Route: 065
     Dates: start: 2012
  3. RIBAVIRIN [Suspect]
     Route: 065
     Dates: start: 20130225
  4. TELAPREVIR [Suspect]
     Indication: HEPATITIS C
     Route: 048
     Dates: start: 20121107, end: 20130129
  5. INTERFERON ALFA-2B [Concomitant]
     Indication: HEPATITIS C
     Route: 058
     Dates: start: 20121107
  6. LISINOPRIL [Concomitant]
     Indication: HYPERTENSION

REACTIONS (2)
  - Blood creatinine increased [Recovering/Resolving]
  - Anaemia [Recovered/Resolved]
